FAERS Safety Report 19429691 (Version 2)
Quarter: 2021Q2

REPORT INFORMATION
  Report Type: Other
  Country: CA (occurrence: CA)
  Receive Date: 20210617
  Receipt Date: 20210619
  Transmission Date: 20210717
  Serious: Yes (Other)
  Sender: FDA-Public Use
  Company Number: CA-ROCHE-2839724

PATIENT
  Age: 79 Year
  Sex: Male

DRUGS (17)
  1. ESBRIET [Suspect]
     Active Substance: PIRFENIDONE
     Route: 048
     Dates: start: 20210304, end: 2021
  2. FELODIPINE. [Concomitant]
     Active Substance: FELODIPINE
  3. METAMUCIL [Concomitant]
     Active Substance: PLANTAGO SEED
     Indication: DIARRHOEA
  4. OMEGA 3?6?9 [Concomitant]
     Active Substance: FISH OIL
  5. SYSTANE (HYPROMELLOSE 2910 (4000 MPA.S)) [Concomitant]
     Active Substance: HYPROMELLOSE 2910 (4000 MPA.S)
  6. ESBRIET [Suspect]
     Active Substance: PIRFENIDONE
     Indication: IDIOPATHIC PULMONARY FIBROSIS
     Route: 048
     Dates: start: 20201205, end: 202012
  7. ESBRIET [Suspect]
     Active Substance: PIRFENIDONE
     Route: 048
     Dates: start: 202012, end: 202012
  8. ESBRIET [Suspect]
     Active Substance: PIRFENIDONE
     Route: 048
     Dates: start: 2021
  9. CLARITIN [Concomitant]
     Active Substance: LORATADINE
  10. TURMERIC [Concomitant]
     Active Substance: HERBALS\TURMERIC
  11. VITAMIN C [Concomitant]
     Active Substance: ASCORBIC ACID
  12. ESBRIET [Suspect]
     Active Substance: PIRFENIDONE
     Route: 048
     Dates: start: 202012, end: 20210111
  13. ALLOPURINOL. [Concomitant]
     Active Substance: ALLOPURINOL
  14. PRAVASTATIN. [Concomitant]
     Active Substance: PRAVASTATIN
  15. RAMIPRIL. [Concomitant]
     Active Substance: RAMIPRIL
  16. BISOPROLOL [Concomitant]
     Active Substance: BISOPROLOL
  17. MAGNESIUM [Concomitant]
     Active Substance: MAGNESIUM

REACTIONS (1)
  - Macular degeneration [Unknown]

NARRATIVE: CASE EVENT DATE: 202104
